FAERS Safety Report 6354455-6 (Version None)
Quarter: 2009Q3

REPORT INFORMATION
  Report Type: 
  Country: None (occurrence: None)
  Receive Date: 20090914
  Receipt Date: 20090902
  Transmission Date: 20100115
  Serious: Yes (Other)
  Sender: FDA-Public Use
  Company Number: AU-AMGEN-STX362651

PATIENT
  Sex: Female
  Weight: 67 kg

DRUGS (9)
  1. VECTIBIX [Suspect]
     Indication: COLORECTAL CANCER
     Route: 042
     Dates: start: 20090902, end: 20090902
  2. OXYCONTIN [Concomitant]
  3. OXYNORM [Concomitant]
  4. LORATADINE [Concomitant]
     Route: 048
  5. DEXAMETHASONE [Concomitant]
     Route: 042
  6. KYTRIL [Concomitant]
     Route: 042
  7. IRINOTECAN HCL [Concomitant]
  8. FLUOROURACIL [Concomitant]
  9. LEUCOVORIN CALCIUM [Concomitant]

REACTIONS (8)
  - ABDOMINAL PAIN [None]
  - ANXIETY [None]
  - BACK PAIN [None]
  - BLOOD POTASSIUM DECREASED [None]
  - GENERAL PHYSICAL HEALTH DETERIORATION [None]
  - HYPERHIDROSIS [None]
  - MUSCLE SPASMS [None]
  - PARAESTHESIA [None]
